FAERS Safety Report 6108018-8 (Version None)
Quarter: 2009Q1

REPORT INFORMATION
  Report Type: 
  Country: None (occurrence: None)
  Receive Date: 20090309
  Receipt Date: 20090227
  Transmission Date: 20090719
  Serious: Yes (Other)
  Sender: FDA-Public Use
  Company Number: US-AVENTIS-200911688US

PATIENT
  Sex: Female

DRUGS (4)
  1. LANTUS [Suspect]
     Route: 058
     Dates: start: 19990101, end: 20050101
  2. LANTUS [Suspect]
     Route: 058
     Dates: start: 20090201
  3. LANTUS [Suspect]
     Route: 058
     Dates: start: 20070101, end: 20090201
  4. INSULIN [Concomitant]
     Dosage: DOSE: UNK

REACTIONS (3)
  - FIBROMYALGIA [None]
  - NEUROPATHY PERIPHERAL [None]
  - RETINAL VEIN OCCLUSION [None]
